FAERS Safety Report 18611540 (Version 1)
Quarter: 2020Q4

REPORT INFORMATION
  Report Type: Spontaneous
  Country: US (occurrence: US)
  Receive Date: 20201203
  Receipt Date: 20201203
  Transmission Date: 20210114
  Serious: Yes (Hospitalization)
  Sender: FDA-Public Use
  Company Number: None

PATIENT
  Sex: Male

DRUGS (1)
  1. ENANTAT 250 [Suspect]
     Active Substance: TESTOSTERONE ENANTHATE
     Route: 030

REACTIONS (3)
  - Product use complaint [None]
  - Injection site abscess [None]
  - Bacteraemia [None]

NARRATIVE: CASE EVENT DATE: 20200912
